FAERS Safety Report 22660103 (Version 1)
Quarter: 2023Q2

REPORT INFORMATION
  Report Type: Spontaneous
  Country: US (occurrence: NL)
  Receive Date: 20230630
  Receipt Date: 20230630
  Transmission Date: 20230722
  Serious: Yes (Hospitalization)
  Sender: FDA-Public Use
  Company Number: US-HALOZYME THERAPEUTICS, INC.-2023-NL-TE -02503

PATIENT

DRUGS (3)
  1. TESTOSTERONE ENANTHATE [Suspect]
     Active Substance: TESTOSTERONE ENANTHATE
     Indication: Product used for unknown indication
  2. LIOTHYRONINE SODIUM [Concomitant]
     Active Substance: LIOTHYRONINE SODIUM
  3. SOMATROPIN [Concomitant]
     Active Substance: SOMATROPIN

REACTIONS (10)
  - Chest pain [None]
  - Dyspnoea [None]
  - Weight increased [None]
  - Pyrexia [None]
  - Tachypnoea [None]
  - Tachycardia [None]
  - Hypoxia [None]
  - Jugular vein distension [None]
  - Rales [None]
  - Generalised oedema [None]
